FAERS Safety Report 8584791-4 (Version None)
Quarter: 2012Q2

REPORT INFORMATION
  Report Type: 
  Country: None (occurrence: None)
  Receive Date: 20120423
  Receipt Date: 20091111
  Transmission Date: 20120825
  Serious: Yes (Hospitalization)
  Sender: FDA-Public Use
  Company Number: PHEH2009US14444

PATIENT
  Age: 57 Year
  Sex: Female

DRUGS (1)
  1. EXJADE [Suspect]
     Dosage: 2000 MG, QD, ORAL
     Route: 048

REACTIONS (2)
  - INFECTION [None]
  - RENAL FAILURE ACUTE [None]
